FAERS Safety Report 9316024 (Version 2)
Quarter: 2013Q2

REPORT INFORMATION
  Report Type: Spontaneous
  Country: US (occurrence: US)
  Receive Date: 20130530
  Receipt Date: 20130624
  Transmission Date: 20140414
  Serious: Yes (Hospitalization)
  Sender: FDA-Public Use
  Company Number: US-BIOGENIDEC-2013BI046697

PATIENT
  Age: 38 Year
  Sex: Male
  Weight: 83 kg

DRUGS (6)
  1. TYSABRI [Suspect]
     Indication: MULTIPLE SCLEROSIS
     Route: 042
     Dates: start: 20080219
  2. TIZANIDINE [Concomitant]
  3. BUPROPION [Concomitant]
  4. FIORICET [Concomitant]
  5. AMPYRA [Concomitant]
  6. OXYCODONE-ACETAMINOPHEN [Concomitant]

REACTIONS (2)
  - Muscle spasms [Not Recovered/Not Resolved]
  - Fatigue [Unknown]
